FAERS Safety Report 9692921 (Version 1)
Quarter: 2013Q4

REPORT INFORMATION
  Report Type: Spontaneous
  Country: US (occurrence: US)
  Receive Date: 20131118
  Receipt Date: 20131118
  Transmission Date: 20140711
  Serious: No
  Sender: FDA-Public Use
  Company Number: US-GLAXOSMITHKLINE-A1008249A

PATIENT
  Age: 78 Year
  Sex: Female

DRUGS (2)
  1. COREG CR [Suspect]
     Indication: PRODUCT USED FOR UNKNOWN INDICATION
     Dates: start: 20121117
  2. CONCURRENT MEDICATIONS [Concomitant]

REACTIONS (1)
  - Blood pressure inadequately controlled [Not Recovered/Not Resolved]
